FAERS Safety Report 21594438 (Version 1)
Quarter: 2022Q4

REPORT INFORMATION
  Report Type: Other
  Country: US (occurrence: None)
  Receive Date: 20221115
  Receipt Date: 20221115
  Transmission Date: 20230112
  Serious: No
  Sender: FDA-Public Use
  Company Number: US-ROCHE-2936154

PATIENT
  Age: 35 Year
  Sex: Female

DRUGS (6)
  1. OSELTAMIVIR [Suspect]
     Active Substance: OSELTAMIVIR
     Indication: COVID-19
     Route: 065
  2. SODIUM CHLORIDE [Concomitant]
     Active Substance: SODIUM CHLORIDE
  3. INSULIN NOS [Concomitant]
     Active Substance: INSULIN NOS
  4. SODIUM BICARBONATE [Concomitant]
     Active Substance: SODIUM BICARBONATE
  5. NOREPINEPHRINE [Concomitant]
     Active Substance: NOREPINEPHRINE
  6. DEXTROSE [Concomitant]
     Active Substance: DEXTROSE

REACTIONS (2)
  - Off label use [Unknown]
  - No adverse event [Unknown]
